FAERS Safety Report 23958224 (Version 1)
Quarter: 2024Q2

REPORT INFORMATION
  Report Type: Report from Study
  Country: US (occurrence: US)
  Receive Date: 20240610
  Receipt Date: 20240610
  Transmission Date: 20240716
  Serious: Yes (Hospitalization)
  Sender: FDA-Public Use
  Company Number: US-Eisai-EC-2024-167393

PATIENT
  Age: 62 Year
  Sex: Female

DRUGS (1)
  1. LENVIMA [Suspect]
     Active Substance: LENVATINIB
     Indication: Renal cancer
     Route: 048
     Dates: start: 20240531, end: 20240602

REACTIONS (8)
  - Nausea [Unknown]
  - Vomiting [Unknown]
  - Flank pain [Unknown]
  - Blood pressure increased [Unknown]
  - Pyrexia [Unknown]
  - Haemorrhage urinary tract [Unknown]
  - Renal impairment [Unknown]
  - Pain [Unknown]

NARRATIVE: CASE EVENT DATE: 20240601
